FAERS Safety Report 6646238-4 (Version None)
Quarter: 2010Q1

REPORT INFORMATION
  Report Type: 
  Country: None (occurrence: None)
  Receive Date: 20100323
  Receipt Date: 20100310
  Transmission Date: 20100710
  Serious: Yes (Hospitalization, Other)
  Sender: FDA-Public Use
  Company Number: US-ROCHE-690666

PATIENT
  Sex: Female

DRUGS (2)
  1. VALIUM [Suspect]
     Route: 048
     Dates: start: 19750101
  2. DIAZEPAM [Suspect]
     Dosage: DRUG ADMINISTERED 'A FEW TIMES'
     Route: 048
     Dates: start: 19900101

REACTIONS (3)
  - GRAND MAL CONVULSION [None]
  - MULTIPLE FRACTURES [None]
  - MYOCARDIAL INFARCTION [None]
